FAERS Safety Report 6138114-0 (Version None)
Quarter: 2009Q1

REPORT INFORMATION
  Report Type: 
  Country: None (occurrence: None)
  Receive Date: 20090331
  Receipt Date: 20090130
  Transmission Date: 20090719
  Serious: Yes (Death)
  Sender: FDA-Public Use
  Company Number: US-TYCO HEALTHCARE/MALLINCKRODT-T200900491

PATIENT
  Age: 48 Year
  Sex: Female

DRUGS (12)
  1. ACETAMINOPHEN AND HYDROCODONE BITARTRATE [Suspect]
     Route: 048
  2. TRAMADOL HCL [Suspect]
     Route: 048
  3. BUPROPION HCL [Suspect]
     Route: 048
  4. VENLAFAXINE [Suspect]
     Route: 048
  5. THIAZOLIDINEDIONE [Suspect]
     Route: 048
  6. COCAINE [Suspect]
     Route: 048
  7. IRBESARTAN [Suspect]
     Route: 048
  8. HYDROCHLOROTHIAZIDE [Suspect]
     Route: 048
  9. DIPHENOXYLATE HCL + ATROPINE SULFATE [Suspect]
     Route: 048
  10. OLANZAPINE [Suspect]
     Route: 048
  11. QUINAPRIL [Suspect]
     Route: 048
  12. BENZODIAZEPINE DERIVATIVES [Suspect]
     Route: 048

REACTIONS (2)
  - CARDIO-RESPIRATORY ARREST [None]
  - COMPLETED SUICIDE [None]
